FAERS Safety Report 8498545-0 (Version None)
Quarter: 2012Q3

REPORT INFORMATION
  Report Type: 
  Country: None (occurrence: None)
  Receive Date: 20120709
  Receipt Date: 20120626
  Transmission Date: 20120928
  Serious: No
  Sender: FDA-Public Use
  Company Number: US-AMGEN-USASP2011017684

PATIENT
  Age: 56 Year
  Sex: Female
  Weight: 93 kg

DRUGS (6)
  1. TEKTURNA [Concomitant]
     Dosage: 150 MG, QD
     Route: 048
  2. ENBREL [Suspect]
     Indication: ANKYLOSING SPONDYLITIS
     Dosage: 50 MG, QWK
     Route: 058
     Dates: start: 20090507, end: 20110809
  3. PRAVASTATIN                        /00880402/ [Concomitant]
     Dosage: 40 MG, QD
     Route: 048
  4. INDAPAMIDE [Concomitant]
     Dosage: 2.5 MG, QD
     Route: 048
  5. ASPIRIN [Concomitant]
     Dosage: 81 MG, QD
     Route: 048
  6. ESTRADIOL [Concomitant]
     Dosage: 1 MG, QD
     Route: 048

REACTIONS (7)
  - THERAPEUTIC PRODUCT INEFFECTIVE [None]
  - FATIGUE [None]
  - DIZZINESS [None]
  - INJECTION SITE ERYTHEMA [None]
  - INJECTION SITE SWELLING [None]
  - INJECTION SITE REACTION [None]
  - NAUSEA [None]
